FAERS Safety Report 17035013 (Version 1)
Quarter: 2019Q4

REPORT INFORMATION
  Report Type: Spontaneous
  Country: US (occurrence: US)
  Receive Date: 20191115
  Receipt Date: 20191115
  Transmission Date: 20200122
  Serious: No
  Sender: FDA-Public Use
  Company Number: US-TEVA-2019-US-1136522

PATIENT
  Sex: Female

DRUGS (2)
  1. HYDROCODONE [Suspect]
     Active Substance: HYDROCODONE
     Indication: BREAKTHROUGH PAIN
     Dosage: AS NEEDED
     Route: 065
  2. BUPRENORPHINE TRANSDERMAL SYSTEM [Suspect]
     Active Substance: BUPRENORPHINE
     Indication: PAIN
     Dosage: 20 MCG/HR
     Route: 062

REACTIONS (3)
  - Nausea [Unknown]
  - Headache [Unknown]
  - Discomfort [Unknown]

NARRATIVE: CASE EVENT DATE: 201910
